FAERS Safety Report 4598839-5 (Version None)
Quarter: 2005Q1

REPORT INFORMATION
  Report Type: 
  Country: None (occurrence: None)
  Receive Date: 20050304
  Receipt Date: 20050215
  Transmission Date: 20050727
  Serious: Yes (Other)
  Sender: FDA-Public Use
  Company Number: US-JNJFOC-20050105983

PATIENT
  Sex: Female
  Weight: 83.46 kg

DRUGS (4)
  1. REMICADE [Suspect]
     Route: 042
  2. REMICADE [Suspect]
     Indication: RHEUMATOID ARTHRITIS
     Route: 042
  3. PREDNISONE [Concomitant]
  4. DOLOBID [Concomitant]

REACTIONS (3)
  - BLINDNESS [None]
  - INFUSION RELATED REACTION [None]
  - RETINAL ARTERY OCCLUSION [None]
